FAERS Safety Report 8303537-8 (Version None)
Quarter: 2012Q2

REPORT INFORMATION
  Report Type: 
  Country: None (occurrence: None)
  Receive Date: 20120423
  Receipt Date: 20120418
  Transmission Date: 20120825
  Serious: Yes (Other)
  Sender: FDA-Public Use
  Company Number: US-PFIZER INC-2012097476

PATIENT
  Sex: Female
  Weight: 71.655 kg

DRUGS (6)
  1. IBUPROFEN (ADVIL) [Concomitant]
     Indication: PAIN
     Dosage: UNK
  2. SOMA [Concomitant]
     Indication: TOURETTE'S DISORDER
     Dosage: 350 MG, AS NEEDED
  3. PAXIL [Concomitant]
     Dosage: UNK
  4. LORAZEPAM [Concomitant]
     Dosage: 2 MG, AS NEEDED
  5. PREMPRO [Suspect]
     Indication: HORMONE THERAPY
     Dosage: 0.3/1.5 MG,DAILY
     Dates: start: 20110501
  6. SOMA [Concomitant]
     Indication: MUSCLE RELAXANT THERAPY

REACTIONS (7)
  - BLOOD TRIGLYCERIDES INCREASED [None]
  - BONE PAIN [None]
  - INSOMNIA [None]
  - THERAPEUTIC RESPONSE UNEXPECTED [None]
  - HOT FLUSH [None]
  - WEIGHT INCREASED [None]
  - BLOOD CHOLESTEROL INCREASED [None]
